FAERS Safety Report 19172437 (Version 1)
Quarter: 2021Q2

REPORT INFORMATION
  Report Type: Report from Study
  Country: RU (occurrence: RU)
  Receive Date: 20210423
  Receipt Date: 20210423
  Transmission Date: 20210717
  Serious: Yes (Death, Other)
  Sender: FDA-Public Use
  Company Number: RU-ADIENNEP-2021AD000268

PATIENT

DRUGS (4)
  1. BORTEZOMIB. [Suspect]
     Active Substance: BORTEZOMIB
     Indication: ALLOGENIC STEM CELL TRANSPLANTATION
     Dosage: 5.2MG/M2 (1.3 MG/M2/DAILY ON DAYS ?5, ?2, +2 AND +5)
  2. THIOTEPA. [Suspect]
     Active Substance: THIOTEPA
     Indication: ALLOGENIC STEM CELL TRANSPLANTATION
     Dosage: 600 MG/M2 (300 MG/M2/D, ON D?6 AND ?5)
  3. RABBIT?ATG [Suspect]
     Active Substance: LAPINE T-LYMPHOCYTE IMMUNE GLOBULIN
     Indication: PROPHYLAXIS AGAINST GRAFT VERSUS HOST DISEASE
     Dosage: 5MG/KG  (2.5 MG/M2/DAILY ON DAYS ?5, AND ?4)
  4. FLUDARABINE [Suspect]
     Active Substance: FLUDARABINE PHOSPHATE
     Indication: ALLOGENIC STEM CELL TRANSPLANTATION
     Dosage: 150MG/M2 (30MG/M2/DAILY FROM DAY ?6 TO DAY ?2)

REACTIONS (3)
  - Adenovirus infection [Unknown]
  - Fungal infection [Fatal]
  - Acute graft versus host disease [Unknown]
